FAERS Safety Report 5125333-5 (Version None)
Quarter: 2006Q4

REPORT INFORMATION
  Report Type: 
  Country: None (occurrence: None)
  Receive Date: 20061006
  Receipt Date: 20060927
  Transmission Date: 20070319
  Serious: Yes (Hospitalization)
  Sender: FDA-Public Use
  Company Number: 163-C5013-06080973

PATIENT
  Age: 77 Year
  Sex: Male
  Weight: 101.6057 kg

DRUGS (9)
  1. CC-5013 (LENALIDOMIDE) (CAPSULES) REVLIMID [Suspect]
     Indication: MULTIPLE MYELOMA
     Dosage: 25 MG, DAILY ON DAYS 1-28 OF 28D
     Dates: start: 20060112, end: 20060817
  2. CLONIDINE [Concomitant]
  3. AVAPRO [Concomitant]
  4. NORVASC [Concomitant]
  5. BACTRIM DS [Concomitant]
  6. ARANESP [Concomitant]
  7. PROCRIT [Concomitant]
  8. NEULASTA [Concomitant]
  9. ZOMETA [Concomitant]

REACTIONS (4)
  - CARDIAC FAILURE CONGESTIVE [None]
  - MYCOBACTERIUM AVIUM COMPLEX INFECTION [None]
  - RESPIRATORY DISORDER [None]
  - SELF-MEDICATION [None]
